FAERS Safety Report 9832106 (Version 5)
Quarter: 2015Q1

REPORT INFORMATION
  Report Type: Spontaneous
  Country: JP (occurrence: JP)
  Receive Date: 20140121
  Receipt Date: 20150217
  Transmission Date: 20150721
  Serious: Yes (Other)
  Sender: FDA-Public Use
  Company Number: JP-JNJFOC-20131008454

PATIENT
  Age: 82 Year
  Sex: Female
  Weight: 19.05 kg

DRUGS (22)
  1. CINAL [Concomitant]
     Active Substance: ASCORBIC ACID\CALCIUM PANTOTHENATE
     Route: 048
  2. TRAMCET [Suspect]
     Active Substance: ACETAMINOPHEN\TRAMADOL
     Indication: PAIN
     Dosage: 3 PER 1 DAY
     Route: 048
     Dates: start: 20131004, end: 20131011
  3. NAUZELIN [Concomitant]
     Active Substance: DOMPERIDONE
     Route: 048
     Dates: start: 20131004, end: 20131011
  4. TRAMCET [Suspect]
     Active Substance: ACETAMINOPHEN\TRAMADOL
     Indication: PAIN
     Dosage: 2 PER 1 DAY
     Route: 048
     Dates: start: 20131012, end: 20131017
  5. SERENAMIN [Concomitant]
     Route: 048
  6. OMEPRAZOLE. [Concomitant]
     Active Substance: OMEPRAZOLE
     Route: 065
  7. TRAMCET [Suspect]
     Active Substance: ACETAMINOPHEN\TRAMADOL
     Indication: PAIN
     Dosage: 1 PER 1 DAY
     Route: 048
     Dates: start: 20131018, end: 20131025
  8. FUROSEMIDE. [Concomitant]
     Active Substance: FUROSEMIDE
     Route: 065
  9. D-ALFA [Concomitant]
     Route: 048
  10. TEPRENONE [Concomitant]
     Active Substance: TEPRENONE
     Route: 048
  11. NAUZELIN [Concomitant]
     Active Substance: DOMPERIDONE
     Route: 048
     Dates: start: 20131018, end: 20131025
  12. SENNOSIDE [Concomitant]
     Active Substance: SENNOSIDES
     Route: 048
  13. NAUZELIN [Concomitant]
     Active Substance: DOMPERIDONE
     Route: 048
     Dates: start: 20131001, end: 20131003
  14. TRAMCET [Suspect]
     Active Substance: ACETAMINOPHEN\TRAMADOL
     Indication: PAIN
     Dosage: 1 PER 1 DAY
     Route: 048
     Dates: start: 20130928, end: 20130930
  15. PRAVASTATIN SODIUM. [Concomitant]
     Active Substance: PRAVASTATIN SODIUM
     Route: 048
  16. HIBON [Concomitant]
     Active Substance: RIBOFLAVIN
     Route: 048
  17. MAGMITT [Concomitant]
     Active Substance: MAGNESIUM OXIDE
     Route: 048
  18. NAUZELIN [Concomitant]
     Active Substance: DOMPERIDONE
     Route: 048
     Dates: start: 20130928, end: 20130930
  19. NAUZELIN [Concomitant]
     Active Substance: DOMPERIDONE
     Route: 048
     Dates: start: 20131012, end: 20131017
  20. TRAMCET [Suspect]
     Active Substance: ACETAMINOPHEN\TRAMADOL
     Indication: PAIN
     Dosage: 2 PER 1 DAY
     Route: 048
     Dates: start: 20131001, end: 20131003
  21. POTASSIUM MAGNESIUM ASPARTATE [Concomitant]
     Route: 065
  22. LOXOPROFEN [Concomitant]
     Active Substance: LOXOPROFEN
     Route: 065

REACTIONS (7)
  - Delirium [Recovered/Resolved]
  - Hallucination, visual [Recovering/Resolving]
  - Depression [Recovering/Resolving]
  - Nausea [Recovered/Resolved]
  - Hallucination, auditory [Unknown]
  - Delusion [Recovering/Resolving]
  - Hallucination [Recovered/Resolved]

NARRATIVE: CASE EVENT DATE: 201310
